FAERS Safety Report 24341252 (Version 1)
Quarter: 2024Q3

REPORT INFORMATION
  Report Type: Spontaneous
  Country: PR (occurrence: PR)
  Receive Date: 20240919
  Receipt Date: 20240919
  Transmission Date: 20241016
  Serious: Yes (Other)
  Sender: ABBVIE
  Company Number: PR-ABBVIE-5928297

PATIENT
  Sex: Female

DRUGS (1)
  1. RINVOQ [Suspect]
     Active Substance: UPADACITINIB
     Indication: Dermatitis atopic
     Route: 048
     Dates: start: 202406

REACTIONS (3)
  - Cardiac ventricular thrombosis [Recovered/Resolved with Sequelae]
  - Metabolic syndrome [Recovered/Resolved with Sequelae]
  - Procedural pain [Recovered/Resolved with Sequelae]

NARRATIVE: CASE EVENT DATE: 20240801
